FAERS Safety Report 9312436 (Version 4)
Quarter: 2013Q4

REPORT INFORMATION
  Report Type: Spontaneous
  Country: CZ (occurrence: CZ)
  Receive Date: 20130528
  Receipt Date: 20131003
  Transmission Date: 20140711
  Serious: Yes (Life-Threatening, Hospitalization)
  Sender: FDA-Public Use
  Company Number: CZ-CELGENEUS-217-21880-13011463

PATIENT
  Age: 69 Year
  Sex: Male
  Weight: 95 kg

DRUGS (7)
  1. REVLIMID [Suspect]
     Indication: PLASMA CELL MYELOMA
     Dosage: 25 MILLIGRAM
     Route: 048
     Dates: start: 20120716, end: 20130307
  2. DEXAMETHASONE [Suspect]
     Indication: PLASMA CELL MYELOMA
     Dosage: 40 MILLIGRAM
     Route: 048
     Dates: start: 20120716, end: 20130305
  3. BONEFOS [Concomitant]
     Indication: PRODUCT USED FOR UNKNOWN INDICATION
     Route: 065
     Dates: start: 20090409
  4. TRAMAL [Concomitant]
     Indication: PRODUCT USED FOR UNKNOWN INDICATION
     Route: 065
     Dates: start: 20110512
  5. FRAXIPARINE [Concomitant]
     Indication: PRODUCT USED FOR UNKNOWN INDICATION
     Route: 065
     Dates: start: 20110505, end: 20130202
  6. FRAXIPARINE [Concomitant]
     Route: 065
     Dates: start: 20130308
  7. HELICID [Concomitant]
     Indication: PRODUCT USED FOR UNKNOWN INDICATION
     Route: 065
     Dates: start: 20110202

REACTIONS (5)
  - Lobar pneumonia [Recovered/Resolved]
  - Staphylococcal sepsis [Recovered/Resolved]
  - Endocarditis [Recovered/Resolved]
  - Staphylococcal sepsis [Recovered/Resolved]
  - Gastroenteritis viral [Recovered/Resolved]
